FAERS Safety Report 6324024-2 (Version None)
Quarter: 2009Q3

REPORT INFORMATION
  Report Type: 
  Country: None (occurrence: None)
  Receive Date: 20090824
  Receipt Date: 20090529
  Transmission Date: 20100115
  Serious: No
  Sender: FDA-Public Use
  Company Number: US-ABBOTT-09P-163-0576969-00

PATIENT
  Sex: Male
  Weight: 74.456 kg

DRUGS (7)
  1. NIASPAN [Suspect]
     Indication: BLOOD CHOLESTEROL INCREASED
     Route: 048
     Dates: end: 20090522
  2. CYMBALTA [Concomitant]
     Indication: DEPRESSION
  3. ATACAND HCT [Concomitant]
     Indication: HYPERTENSION
  4. FLOMAX [Concomitant]
     Indication: URINE FLOW DECREASED
  5. OMEPRAZOLE [Concomitant]
     Indication: GASTROOESOPHAGEAL REFLUX DISEASE
  6. CLONAZEPAM [Concomitant]
     Indication: INSOMNIA
  7. TRAZODONE HCL [Concomitant]
     Indication: INSOMNIA

REACTIONS (4)
  - DRUG DISPENSING ERROR [None]
  - FLUSHING [None]
  - PRURITUS [None]
  - SKIN BURNING SENSATION [None]
